FAERS Safety Report 6575306-0 (Version None)
Quarter: 2010Q1

REPORT INFORMATION
  Report Type: 
  Country: None (occurrence: None)
  Receive Date: 20100209
  Receipt Date: 20100129
  Transmission Date: 20100710
  Serious: Yes (Other)
  Sender: FDA-Public Use
  Company Number: US-JNJFOC-20100201205

PATIENT
  Age: 62 Year
  Sex: Female
  Weight: 65.77 kg

DRUGS (9)
  1. EXTRA STRENGTH TYLENOL [Suspect]
     Indication: INFLUENZA
     Route: 048
  2. EXTRA STRENGTH TYLENOL [Suspect]
     Indication: NASOPHARYNGITIS
     Route: 048
  3. INDERAL [Concomitant]
     Indication: CARDIAC DISORDER
  4. UROCIT-K [Concomitant]
     Indication: NEPHROLITHIASIS
  5. HYDROCHLOROTHIAZIDE [Concomitant]
     Indication: NEPHROLITHIASIS
  6. ASPIRIN [Concomitant]
     Indication: CARDIAC DISORDER
  7. COZAAR [Concomitant]
     Indication: CARDIAC DISORDER
  8. CRESTOR [Concomitant]
     Indication: BLOOD CHOLESTEROL INCREASED
  9. FOSAMAX [Concomitant]
     Indication: OSTEOPOROSIS

REACTIONS (7)
  - DECREASED APPETITE [None]
  - DIARRHOEA [None]
  - PRODUCT QUALITY ISSUE [None]
  - UPPER RESPIRATORY TRACT INFECTION [None]
  - URINE BILIRUBIN INCREASED [None]
  - VOMITING [None]
  - WEIGHT DECREASED [None]
